FAERS Safety Report 12471236 (Version 1)
Quarter: 2016Q2

REPORT INFORMATION
  Report Type: Spontaneous
  Country: US (occurrence: None)
  Receive Date: 20160615
  Receipt Date: 20160615
  Transmission Date: 20160815
  Serious: No
  Sender: FDA-Public Use
  Company Number: None

PATIENT
  Age: 69 Year
  Sex: Male

DRUGS (5)
  1. ONDANSETRON [Concomitant]
     Active Substance: ONDANSETRON
  2. ATENOLOL. [Concomitant]
     Active Substance: ATENOLOL
  3. VOTRIENT [Suspect]
     Active Substance: PAZOPANIB HYDROCHLORIDE
     Indication: RENAL CANCER
     Route: 048
     Dates: start: 20160210, end: 20160525
  4. FINASTERIDE. [Concomitant]
     Active Substance: FINASTERIDE
  5. TAMSULOSIN [Concomitant]
     Active Substance: TAMSULOSIN

REACTIONS (3)
  - Unevaluable event [None]
  - Diarrhoea [None]
  - Blood count abnormal [None]

NARRATIVE: CASE EVENT DATE: 201605
